FAERS Safety Report 22733884 (Version 2)
Quarter: 2024Q3

REPORT INFORMATION
  Report Type: Spontaneous
  Country: BR (occurrence: BR)
  Receive Date: 20230721
  Receipt Date: 20240726
  Transmission Date: 20241016
  Serious: Yes (Other)
  Sender: CELLTRION
  Company Number: BR-CELLTRION INC.-2023BR000721

PATIENT

DRUGS (7)
  1. INFLIXIMAB [Suspect]
     Active Substance: INFLIXIMAB
     Indication: Crohn^s disease
     Dosage: 2 AMPOLES EVERY 15 DAYS
     Route: 042
     Dates: start: 20221118
  2. LOSARTAN [Concomitant]
     Active Substance: LOSARTAN
     Indication: Hypertension
     Dosage: 1 PILL PER DAY
     Route: 048
     Dates: start: 2022
  3. PREDNISOLONE [Concomitant]
     Active Substance: PREDNISOLONE
     Indication: Amyloidosis
     Dosage: 1 PILL PER DAY, START: 7 YEARS AGO
     Route: 048
  4. PREDNISOLONE [Concomitant]
     Active Substance: PREDNISOLONE
     Indication: Crohn^s disease
  5. HYDROCHLOROTHIAZIDE [Concomitant]
     Active Substance: HYDROCHLOROTHIAZIDE
     Indication: Hypertension
     Dosage: 1 PILL PER DAY
     Route: 048
     Dates: start: 2022
  6. OMEPRAZOLE [Concomitant]
     Active Substance: OMEPRAZOLE
     Dosage: 2 PILLS PER DAY, START: 7 YEARS AGO
     Route: 048
  7. AZATHIOPRINE [Concomitant]
     Active Substance: AZATHIOPRINE
     Indication: Crohn^s disease
     Dosage: 1 PILL PER DAY, START: 7 YEARS AGO
     Route: 048

REACTIONS (8)
  - Immunodeficiency [Unknown]
  - Headache [Unknown]
  - Nausea [Unknown]
  - Oropharyngeal pain [Unknown]
  - Influenza [Unknown]
  - Intentional product use issue [Unknown]
  - Therapy interrupted [Unknown]
  - Intentional dose omission [Unknown]
